FAERS Safety Report 9618731 (Version 3)
Quarter: 2013Q4

REPORT INFORMATION
  Report Type: Spontaneous
  Country: BR (occurrence: BR)
  Receive Date: 20131014
  Receipt Date: 20131231
  Transmission Date: 20140711
  Serious: Yes (Death, Hospitalization)
  Sender: FDA-Public Use
  Company Number: BR-SA-2013SA102488

PATIENT
  Age: 18 Year
  Sex: Male
  Weight: 66 kg

DRUGS (3)
  1. FABRAZYME [Suspect]
     Indication: FABRY^S DISEASE
     Dosage: 2 VIALS EVERY TWO WEEKS
     Route: 042
     Dates: start: 20090616, end: 20091210
  2. TYLENOL [Concomitant]
     Indication: PREMEDICATION
     Dosage: 1 TABLET. 30 MINUTES PRIOR TO THE INFUSION.
  3. HIXIZINE [Concomitant]
     Indication: PREMEDICATION
     Dosage: 30 MINUTES PRIOR TO THE INFUSION.

REACTIONS (3)
  - Cardio-respiratory arrest [Fatal]
  - Respiratory arrest [Fatal]
  - Pain [Unknown]
